FAERS Safety Report 5144096-0 (Version None)
Quarter: 2006Q4

REPORT INFORMATION
  Report Type: 
  Country: None (occurrence: None)
  Receive Date: 20061106
  Receipt Date: 20061101
  Transmission Date: 20070319
  Serious: Yes (Other)
  Sender: FDA-Public Use
  Company Number: DE-GLAXOSMITHKLINE-D0051354A

PATIENT
  Age: 60 Year

DRUGS (7)
  1. CEFUROXIME [Suspect]
     Indication: SYSTEMIC ANTIBACTERIAL THERAPY
     Dosage: 500MG UNKNOWN
     Route: 065
     Dates: start: 20060601
  2. EMCONCOR MITIS [Suspect]
     Dosage: 5MG UNKNOWN
     Route: 065
  3. TEVETEN [Suspect]
     Dosage: 600MG UNKNOWN
     Route: 048
     Dates: start: 20060101
  4. LOZOL [Suspect]
     Dosage: 5MG UNKNOWN
     Route: 065
     Dates: start: 20060101
  5. CEFUROXIME [Concomitant]
     Route: 065
     Dates: start: 20060601
  6. VIBROCIL [Concomitant]
     Route: 045
     Dates: start: 20060601
  7. COUGH MEDICINE [Concomitant]
     Route: 065
     Dates: start: 20060601

REACTIONS (5)
  - ANOSMIA [None]
  - DYSGEUSIA [None]
  - FEAR [None]
  - MENTAL STATUS CHANGES [None]
  - PANIC REACTION [None]
